FAERS Safety Report 9758117 (Version 1)
Quarter: 2013Q4

REPORT INFORMATION
  Report Type: Spontaneous
  Country: US (occurrence: US)
  Receive Date: 20131216
  Receipt Date: 20131216
  Transmission Date: 20140711
  Serious: No
  Sender: FDA-Public Use
  Company Number: US-BAYER-2013-153046

PATIENT
  Sex: Female

DRUGS (2)
  1. CLIMARA [Suspect]
     Dosage: 25 MG, UNK
     Route: 062
  2. MENOSTAR [Suspect]
     Dosage: 3.25 MG, UNK
     Route: 062

REACTIONS (2)
  - Insomnia [None]
  - Feeling abnormal [None]
